FAERS Safety Report 16615045 (Version 6)
Quarter: 2019Q4

REPORT INFORMATION
  Report Type: Spontaneous
  Country: US (occurrence: US)
  Receive Date: 20190723
  Receipt Date: 20191004
  Transmission Date: 20200122
  Serious: Yes (Hospitalization, Other)
  Sender: FDA-Public Use
  Company Number: US-JNJFOC-20190718269

PATIENT
  Age: 93 Year
  Sex: Male

DRUGS (10)
  1. IRON [Concomitant]
     Active Substance: IRON
  2. CALCIUM [Concomitant]
     Active Substance: CALCIUM
  3. ASPRIN [Suspect]
     Active Substance: ASPIRIN
     Indication: NON-HODGKIN^S LYMPHOMA
     Route: 065
     Dates: start: 201902, end: 20190820
  4. OMEPRAZOLE. [Concomitant]
     Active Substance: OMEPRAZOLE
  5. IMBRUVICA [Suspect]
     Active Substance: IBRUTINIB
     Indication: NON-HODGKIN^S LYMPHOMA
     Dosage: 140 MG, QD
     Route: 048
     Dates: start: 201905
  6. ACYCLOVIR                          /00587301/ [Concomitant]
     Active Substance: ACYCLOVIR
  7. ALLOPURINOL. [Concomitant]
     Active Substance: ALLOPURINOL
  8. IMBRUVICA [Suspect]
     Active Substance: IBRUTINIB
     Indication: CHRONIC LYMPHOCYTIC LEUKAEMIA
     Dosage: 140 MG, QD
     Route: 048
     Dates: start: 201904, end: 2019
  9. MULTIVITAMINS                      /00116001/ [Concomitant]
     Active Substance: VITAMINS
  10. CITALOPRAM [Concomitant]
     Active Substance: CITALOPRAM HYDROBROMIDE

REACTIONS (8)
  - Arthralgia [Recovered/Resolved]
  - Erythema [Unknown]
  - Peripheral swelling [Not Recovered/Not Resolved]
  - Colitis [Recovering/Resolving]
  - Muscle spasms [Not Recovered/Not Resolved]
  - Pneumonitis [Recovering/Resolving]
  - Stomatitis [Recovered/Resolved]
  - Contusion [Not Recovered/Not Resolved]

NARRATIVE: CASE EVENT DATE: 2019
